FAERS Safety Report 16135487 (Version 1)
Quarter: 2019Q1

REPORT INFORMATION
  Report Type: Report from Study
  Country: US (occurrence: US)
  Receive Date: 20190329
  Receipt Date: 20190329
  Transmission Date: 20190418
  Serious: Yes (Hospitalization)
  Sender: FDA-Public Use
  Company Number: US-GILEAD-2019-0399382

PATIENT
  Sex: Male

DRUGS (1)
  1. IDELALISIB [Suspect]
     Active Substance: IDELALISIB
     Indication: COLON CANCER
     Dosage: 150 MG, BID
     Route: 048
     Dates: start: 20190225, end: 201903

REACTIONS (1)
  - Pleural effusion [Unknown]
